FAERS Safety Report 19116937 (Version 1)
Quarter: 2021Q2

REPORT INFORMATION
  Report Type: Other
  Country: DE (occurrence: DE)
  Receive Date: 20210410
  Receipt Date: 20210410
  Transmission Date: 20210717
  Serious: Yes (Other)
  Sender: FDA-Public Use
  Company Number: DE-ROCHE-2802015

PATIENT

DRUGS (5)
  1. INFLIXIMAB [Suspect]
     Active Substance: INFLIXIMAB
     Indication: GRANULOMATOSIS WITH POLYANGIITIS
     Dosage: 400 MG, AT WEEKS 0?2?6 AND EVERY 6 WEEKS THEREAFTER?POWDER FOR SOLUTION FOR INFUSION
     Route: 042
     Dates: start: 2011
  2. TRIMIPRAMINE [Concomitant]
     Active Substance: TRIMIPRAMINE
  3. AZATHIOPRINE. [Suspect]
     Active Substance: AZATHIOPRINE
     Indication: GRANULOMATOSIS WITH POLYANGIITIS
     Dosage: 150 MG/DAY
     Route: 065
     Dates: start: 2010
  4. SULFAMETHOXAZOLE [Concomitant]
     Active Substance: SULFAMETHOXAZOLE
     Indication: PROPHYLAXIS
     Dosage: UNK
  5. RITUXIMAB. [Suspect]
     Active Substance: RITUXIMAB
     Indication: GRANULOMATOSIS WITH POLYANGIITIS
     Dosage: 1000 MG AT WEEKS 0?2 AND THEN 500 MG EVERY 6 MONTHS THEREAFTER?CONCENTRATE FOR SOLUTION FOR INFUSION
     Route: 065
     Dates: start: 2010

REACTIONS (3)
  - Orbital granuloma [Recovering/Resolving]
  - Granulomatosis with polyangiitis [Recovering/Resolving]
  - Off label use [Unknown]
